FAERS Safety Report 8382472-3 (Version None)
Quarter: 2012Q2

REPORT INFORMATION
  Report Type: 
  Country: None (occurrence: None)
  Receive Date: 20120524
  Receipt Date: 20120521
  Transmission Date: 20120825
  Serious: Yes (Other)
  Sender: FDA-Public Use
  Company Number: PHHY2012FR036748

PATIENT
  Sex: Female

DRUGS (8)
  1. CYMBALTA [Concomitant]
     Indication: DEPRESSION
     Dosage: 1 DF, UNK
     Route: 048
     Dates: start: 20080627
  2. RABEPRAZOLE SODIUM [Concomitant]
     Dosage: UNK UKN, UNK
  3. LYRICA [Concomitant]
     Indication: PUDENDAL CANAL SYNDROME
     Dosage: 1 DF, UNK
     Dates: start: 20061219
  4. ZOLEDRONOC ACID [Suspect]
     Dosage: UNK UKN, UNK
     Route: 042
     Dates: end: 20100820
  5. OROCAL VITAMIN D [Concomitant]
     Indication: OSTEOPOROSIS
     Dosage: 1 DF, BID
     Route: 048
     Dates: start: 20000101
  6. FENOFIBRATE [Concomitant]
     Indication: DYSLIPIDAEMIA
     Dosage: 1 DF, UNK
     Route: 048
     Dates: start: 20000101
  7. ZOLEDRONOC ACID [Suspect]
     Indication: OSTEOPOROSIS
     Dosage: UNK UKN, UNK
     Route: 042
     Dates: start: 20080814
  8. CLONAZEPAM [Concomitant]
     Dosage: UNK UKN, UNK

REACTIONS (2)
  - ARTHRALGIA [None]
  - FEMORAL NECK FRACTURE [None]
